FAERS Safety Report 9371848 (Version 1)
Quarter: 2013Q2

REPORT INFORMATION
  Report Type: Report from Study
  Country: US (occurrence: US)
  Receive Date: 20130627
  Receipt Date: 20130627
  Transmission Date: 20140414
  Serious: Yes (Death)
  Sender: FDA-Public Use
  Company Number: US-MYLANLABS-2012S1009027

PATIENT
  Age: 48 Year
  Sex: Female

DRUGS (6)
  1. CLOZAPINE TABLETS [Suspect]
     Indication: PSYCHOTIC DISORDER
     Route: 048
     Dates: start: 2004, end: 2012
  2. CYMBALTA [Concomitant]
  3. SEROQUEL [Concomitant]
  4. PAXIL [Concomitant]
  5. VALIUM [Concomitant]
  6. ADDERALL [Concomitant]

REACTIONS (1)
  - Myocardial infarction [Fatal]
